FAERS Safety Report 19800008 (Version 1)
Quarter: 2021Q3

REPORT INFORMATION
  Report Type: Spontaneous
  Country: SE (occurrence: SE)
  Receive Date: 20210907
  Receipt Date: 20210907
  Transmission Date: 20211014
  Serious: Yes (Other)
  Sender: FDA-Public Use
  Company Number: SE-MYLANLABS-2021M1058354

PATIENT
  Age: 79 Year
  Sex: Male

DRUGS (2)
  1. DONEPEZIL. [Suspect]
     Active Substance: DONEPEZIL
     Indication: DISTURBANCE IN ATTENTION
     Dosage: 10 MILLIGRAM (AFTER ONE MONTH)
     Route: 065
  2. DONEPEZIL. [Suspect]
     Active Substance: DONEPEZIL
     Dosage: 5 MILLIGRAM
     Route: 065

REACTIONS (6)
  - Confusional state [Unknown]
  - Amnesia [Unknown]
  - Rash macular [Unknown]
  - Dementia Alzheimer^s type [Unknown]
  - Unevaluable event [Unknown]
  - Off label use [Unknown]
